FAERS Safety Report 11227943 (Version 1)
Quarter: 2015Q2

REPORT INFORMATION
  Report Type: Report from Study
  Country: US (occurrence: US)
  Receive Date: 20150630
  Receipt Date: 20150630
  Transmission Date: 20150821
  Serious: Yes (Death, Other)
  Sender: FDA-Public Use
  Company Number: US-BAYER-2015-135581

PATIENT
  Age: 40 Year
  Sex: Female

DRUGS (1)
  1. STIVARGA [Suspect]
     Active Substance: REGORAFENIB
     Indication: COLON CANCER
     Dosage: 4 X 40 MG QD
     Route: 048
     Dates: start: 20150401, end: 20150415

REACTIONS (12)
  - Rash [None]
  - Dysphagia [None]
  - Rash erythematous [None]
  - Abasia [None]
  - Death [Fatal]
  - Poor peripheral circulation [None]
  - Weight decreased [Not Recovered/Not Resolved]
  - Pharyngeal oedema [None]
  - Oral mucosal blistering [Not Recovered/Not Resolved]
  - Blister [Not Recovered/Not Resolved]
  - Stomatitis [Not Recovered/Not Resolved]
  - Peripheral swelling [None]

NARRATIVE: CASE EVENT DATE: 201504
